FAERS Safety Report 8851916 (Version 2)
Quarter: 2012Q4

REPORT INFORMATION
  Report Type: 
  Country: VE (occurrence: VE)
  Receive Date: 20121022
  Receipt Date: 20121111
  Transmission Date: 20130627
  Serious: Yes (Life-Threatening, Other)
  Sender: FDA-Public Use
  Company Number: PHHY2012VE093978

PATIENT
  Age: 63 None
  Sex: Female

DRUGS (3)
  1. ACLASTA [Suspect]
     Indication: OSTEOPOROSIS
     Dosage: 5 mg annual
     Route: 042
     Dates: start: 201204
  2. CALCIO                             /00944201/ [Concomitant]
  3. VITAMIN D3 [Concomitant]

REACTIONS (9)
  - Gastroenteritis bacterial [Recovered/Resolved]
  - Diarrhoea [Recovering/Resolving]
  - Abdominal discomfort [Recovering/Resolving]
  - Feeling abnormal [Recovered/Resolved]
  - Arthralgia [Recovered/Resolved]
  - Pain in extremity [Recovered/Resolved]
  - Headache [Recovering/Resolving]
  - Abasia [Recovered/Resolved]
  - Bone pain [Recovered/Resolved]
